FAERS Safety Report 20418582 (Version 5)
Quarter: 2024Q1

REPORT INFORMATION
  Report Type: Spontaneous
  Country: US (occurrence: US)
  Receive Date: 20220202
  Receipt Date: 20240210
  Transmission Date: 20240409
  Serious: No
  Sender: FDA-Public Use
  Company Number: US-AMGEN-USASP2022015482

PATIENT
  Age: 69 Year
  Sex: Male

DRUGS (4)
  1. OTEZLA [Suspect]
     Active Substance: APREMILAST
     Indication: Psoriatic arthropathy
     Dosage: 30 MILLIGRAM, BID
     Route: 048
  2. OTEZLA [Suspect]
     Active Substance: APREMILAST
     Dosage: 30 MILLIGRAM, BID
     Route: 048
     Dates: start: 20220128
  3. CIMZIA [Concomitant]
     Active Substance: CERTOLIZUMAB PEGOL
     Dosage: UNK (200 MILLIGRAM PER ML PREFILLED KIT)
     Route: 065
  4. ORENCIA [Concomitant]
     Active Substance: ABATACEPT
     Dosage: 250 MILLIGRAM

REACTIONS (1)
  - Pain [Unknown]

NARRATIVE: CASE EVENT DATE: 20211201
